FAERS Safety Report 4647827-9 (Version None)
Quarter: 2005Q2

REPORT INFORMATION
  Report Type: 
  Country: None (occurrence: None)
  Receive Date: 20050428
  Receipt Date: 20050416
  Transmission Date: 20051028
  Serious: Yes (Hospitalization)
  Sender: FDA-Public Use
  Company Number: AP0508

PATIENT
  Sex: Female

DRUGS (5)
  1. LOTRONEX [Suspect]
     Indication: DRUG USE FOR UNKNOWN INDICATION
     Dosage: 1MG PER DAY
     Route: 048
     Dates: start: 20050301, end: 20050413
  2. LIPITOR [Concomitant]
  3. BENICAR [Concomitant]
  4. NORVASC [Concomitant]
  5. PAXIL [Concomitant]

REACTIONS (3)
  - ABDOMINAL DISTENSION [None]
  - BACK PAIN [None]
  - HAEMATOCHEZIA [None]
